FAERS Safety Report 21885739 (Version 3)
Quarter: 2023Q2

REPORT INFORMATION
  Report Type: Report from Study
  Country: BE (occurrence: BE)
  Receive Date: 20230119
  Receipt Date: 20230406
  Transmission Date: 20230722
  Serious: Yes (Hospitalization)
  Sender: FDA-Public Use
  Company Number: BE-SEATTLE GENETICS-2022SGN11500

PATIENT
  Age: 66 Year
  Sex: Female
  Weight: 42 kg

DRUGS (6)
  1. TRASTUZUMAB [Suspect]
     Active Substance: TRASTUZUMAB
     Indication: HER2 positive breast cancer
     Dosage: 288 MG ON DAY 1 OF EVERY 21-DAY CYCLE
     Route: 058
     Dates: start: 20221025
  2. CAPECITABINE [Suspect]
     Active Substance: CAPECITABINE
     Indication: HER2 positive breast cancer
     Dosage: 1000 MG/M2, ON DAYS 1-14 ONLY OF A 21-DAY CYCLE
     Route: 048
     Dates: start: 20221025
  3. TUCATINIB [Suspect]
     Active Substance: TUCATINIB
     Indication: HER2 positive breast cancer
     Dosage: 600 MILLIGRAM, QD, (300 MG, BID)
     Route: 048
     Dates: start: 20221026
  4. DEXPANTHENOL [Concomitant]
     Active Substance: DEXPANTHENOL
     Indication: Prophylaxis
     Dosage: 20 MILLIGRAM
     Route: 065
     Dates: start: 2017
  5. ATORVASTATIN [Concomitant]
     Active Substance: ATORVASTATIN
     Indication: Prophylaxis
     Dosage: 10 MILLIGRAM
     Route: 065
     Dates: start: 2020
  6. ASPIRIN [Concomitant]
     Active Substance: ASPIRIN
     Indication: Prophylaxis
     Dosage: 80 MILLIGRAM
     Route: 065
     Dates: start: 2017

REACTIONS (2)
  - Adrenal insufficiency [Recovered/Resolved]
  - Colitis [Recovered/Resolved]

NARRATIVE: CASE EVENT DATE: 20221114
